FAERS Safety Report 10253514 (Version 1)
Quarter: 2014Q2

REPORT INFORMATION
  Report Type: Spontaneous
  Country: US (occurrence: US)
  Receive Date: 20140623
  Receipt Date: 20140623
  Transmission Date: 20141212
  Serious: Yes (Death)
  Sender: FDA-Public Use
  Company Number: US-MALLINCKRODT-T201402538

PATIENT
  Age: 40 Year
  Sex: Female

DRUGS (1)
  1. FENTANYL CITRATE [Suspect]
     Indication: CANCER PAIN
     Dosage: 1600UG, 1 Q 4 HRS
     Route: 048
     Dates: start: 2012, end: 2013

REACTIONS (1)
  - Condition aggravated [Fatal]
